FAERS Safety Report 8504910-5 (Version None)
Quarter: 2012Q3

REPORT INFORMATION
  Report Type: 
  Country: None (occurrence: None)
  Receive Date: 20120712
  Receipt Date: 20120703
  Transmission Date: 20120928
  Serious: Yes (Other)
  Sender: FDA-Public Use
  Company Number: PHEH2012US011417

PATIENT
  Sex: Female
  Weight: 87.075 kg

DRUGS (4)
  1. FLOVENT [Concomitant]
     Dosage: 44 MCG/ACT PRN
  2. VENTOLIN [Concomitant]
     Dosage: 108 (90 BASE) MCG/AC PRN
  3. ALBUTEROL [Concomitant]
     Dosage: UNK UKN, UNK
  4. GILENYA [Suspect]
     Dosage: 0.5 MG, QD
     Route: 048
     Dates: start: 20120604

REACTIONS (13)
  - DYSPNOEA [None]
  - POSTURE ABNORMAL [None]
  - BLOOD PRESSURE DECREASED [None]
  - ELECTROCARDIOGRAM QT PROLONGED [None]
  - CHEST PAIN [None]
  - HEADACHE [None]
  - CHEST DISCOMFORT [None]
  - DIZZINESS [None]
  - SINUS BRADYCARDIA [None]
  - HEAD DISCOMFORT [None]
  - FEELING ABNORMAL [None]
  - CARDIAC FLUTTER [None]
  - ECG SIGNS OF MYOCARDIAL ISCHAEMIA [None]
